FAERS Safety Report 7926235-9 (Version None)
Quarter: 2011Q4

REPORT INFORMATION
  Report Type: 
  Country: None (occurrence: None)
  Receive Date: 20111118
  Receipt Date: 20111110
  Transmission Date: 20120403
  Serious: Yes (Other)
  Sender: FDA-Public Use
  Company Number: US-BIOGENIDEC-2011BI037859

PATIENT
  Age: 28 Year
  Sex: Female

DRUGS (5)
  1. TYSABRI [Suspect]
     Indication: MULTIPLE SCLEROSIS
     Route: 042
     Dates: start: 20100413, end: 20110826
  2. ELAVIL [Concomitant]
  3. LIORESAL [Concomitant]
  4. TEGRETOL [Concomitant]
  5. IMITREX [Concomitant]

REACTIONS (1)
  - ABORTION SPONTANEOUS [None]
